FAERS Safety Report 4281780-5 (Version None)
Quarter: 2004Q1

REPORT INFORMATION
  Report Type: 
  Country: None (occurrence: None)
  Receive Date: 20040128
  Receipt Date: 20040121
  Transmission Date: 20041129
  Serious: Yes (Death)
  Sender: FDA-Public Use
  Company Number: USA-2004-0012543

PATIENT
  Age: 43 Year
  Sex: Male
  Weight: 99.8 kg

DRUGS (4)
  1. OXYCODONE HCL [Suspect]
  2. COCAINE (COCAINE) [Suspect]
  3. ETHANOL (ETHANOL) [Suspect]
     Dosage: UNK L,
  4. ACETAMINOPHEN [Suspect]

REACTIONS (8)
  - ACCIDENTAL OVERDOSE [None]
  - ATELECTASIS [None]
  - CONDYLOMA ACUMINATUM [None]
  - CORONARY ARTERY ATHEROSCLEROSIS [None]
  - EMPHYSEMA [None]
  - MULTIPLE DRUG OVERDOSE [None]
  - NEPHROSCLEROSIS [None]
  - PULMONARY CONGESTION [None]
